FAERS Safety Report 22197636 (Version 10)
Quarter: 2025Q4

REPORT INFORMATION
  Report Type: Spontaneous
  Country: CO (occurrence: CO)
  Receive Date: 20230411
  Receipt Date: 20251125
  Transmission Date: 20260119
  Serious: Yes (Hospitalization, Other)
  Sender: BIOMARIN
  Company Number: CO-SA-SAC20230328000291

PATIENT
  Age: 3 Year
  Sex: Female

DRUGS (3)
  1. LARONIDASE [Suspect]
     Active Substance: LARONIDASE
     Indication: Mucopolysaccharidosis I
     Dosage: 10.44 MG, QW
     Dates: start: 20210910
  2. LARONIDASE [Suspect]
     Active Substance: LARONIDASE
     Dosage: 8.7 MG, Q15D
     Route: 041
     Dates: start: 20211012, end: 20240828
  3. LARONIDASE [Suspect]
     Active Substance: LARONIDASE
     Dosage: 10.44 MG, QW
     Dates: end: 20251112

REACTIONS (22)
  - Urinary tract infection [Not Recovered/Not Resolved]
  - Influenza like illness [Recovered/Resolved]
  - Blindness [Not Recovered/Not Resolved]
  - Wound infection [Recovered/Resolved]
  - Wound complication [Recovered/Resolved]
  - Feeling hot [Recovered/Resolved]
  - Pyrexia [Not Recovered/Not Resolved]
  - Malaise [Not Recovered/Not Resolved]
  - Headache [Not Recovered/Not Resolved]
  - Nasal congestion [Unknown]
  - Influenza like illness [Recovering/Resolving]
  - Cough [Recovering/Resolving]
  - Nasal congestion [Recovering/Resolving]
  - Pyrexia [Recovering/Resolving]
  - Viral infection [Recovered/Resolved]
  - Pyrexia [Recovered/Resolved]
  - Cough [Recovered/Resolved]
  - Malaise [Recovered/Resolved]
  - Vomiting [Recovered/Resolved]
  - Vomiting [Recovering/Resolving]
  - Pyrexia [Not Recovered/Not Resolved]
  - Inappropriate schedule of product administration [Unknown]

NARRATIVE: CASE EVENT DATE: 20211012
